FAERS Safety Report 8513667-3 (Version None)
Quarter: 2012Q3

REPORT INFORMATION
  Report Type: 
  Country: None (occurrence: None)
  Receive Date: 20120717
  Receipt Date: 20120713
  Transmission Date: 20120928
  Serious: No
  Sender: FDA-Public Use
  Company Number: US-PFIZER INC-2012169710

PATIENT
  Sex: Male
  Weight: 79.365 kg

DRUGS (2)
  1. CELEBREX [Suspect]
     Dosage: 200 MG ONCE
     Dates: start: 20120711, end: 20120712
  2. CELEBREX [Suspect]
     Indication: ARTHRALGIA
     Dosage: UNK

REACTIONS (5)
  - PRURITUS [None]
  - HYPERSENSITIVITY [None]
  - DYSPNOEA [None]
  - EXPIRED DRUG ADMINISTERED [None]
  - SWELLING [None]
